FAERS Safety Report 17208269 (Version 5)
Quarter: 2020Q1

REPORT INFORMATION
  Report Type: Report from Study
  Country: US (occurrence: US)
  Receive Date: 20191227
  Receipt Date: 20200225
  Transmission Date: 20200409
  Serious: Yes (Hospitalization, Other)
  Sender: FDA-Public Use
  Company Number: US-GILEAD-2019-0444281

PATIENT
  Age: 64 Year
  Sex: Male

DRUGS (1)
  1. SOFOSBUVIR W/VELPATASVIR [Suspect]
     Active Substance: SOFOSBUVIR\VELPATASVIR
     Indication: HEPATITIS C
     Dosage: 1 DOSAGE FORM, QD
     Route: 048
     Dates: start: 20191028

REACTIONS (5)
  - Myocardial infarction [Not Recovered/Not Resolved]
  - Weight increased [Unknown]
  - Vascular graft [Recovered/Resolved]
  - Weight decreased [Not Recovered/Not Resolved]
  - Product dose omission [Unknown]

NARRATIVE: CASE EVENT DATE: 20191217
